FAERS Safety Report 21919421 (Version 3)
Quarter: 2023Q1

REPORT INFORMATION
  Report Type: Report from Study
  Country: DK (occurrence: DK)
  Receive Date: 20230127
  Receipt Date: 20230202
  Transmission Date: 20230417
  Serious: Yes (Hospitalization)
  Sender: FDA-Public Use
  Company Number: DK-ROCHE-3031345

PATIENT
  Age: 69 Year
  Sex: Female
  Weight: 72.9 kg

DRUGS (17)
  1. RITUXIMAB [Suspect]
     Active Substance: RITUXIMAB
     Indication: Follicular lymphoma stage IV
     Route: 041
     Dates: start: 20211228, end: 20220125
  2. RITUXIMAB [Suspect]
     Active Substance: RITUXIMAB
     Route: 041
     Dates: start: 20220125
  3. LENALIDOMIDE [Suspect]
     Active Substance: LENALIDOMIDE
     Indication: Follicular lymphoma stage IV
     Route: 048
     Dates: start: 20211228, end: 20220117
  4. LENALIDOMIDE [Suspect]
     Active Substance: LENALIDOMIDE
     Route: 048
     Dates: start: 20220125, end: 20220204
  5. ASPIRIN [Concomitant]
     Active Substance: ASPIRIN
     Dates: start: 20211228, end: 20220204
  6. PREDNISOLONE [Concomitant]
     Active Substance: PREDNISOLONE
     Dates: start: 20220116, end: 20220117
  7. FUSIDIC ACID [Concomitant]
     Active Substance: FUSIDIC ACID
     Dates: start: 20220118, end: 20220121
  8. CHLORAMPHENICOL [Concomitant]
     Active Substance: CHLORAMPHENICOL
     Dates: start: 20220121, end: 20220208
  9. SOLU-MEDROL [Concomitant]
     Active Substance: METHYLPREDNISOLONE SODIUM SUCCINATE
     Dates: start: 20220115, end: 20220115
  10. BISACODYL [Concomitant]
     Active Substance: BISACODYL
     Dates: start: 20210706
  11. TOCILIZUMAB [Concomitant]
     Active Substance: TOCILIZUMAB
     Route: 065
     Dates: start: 20220115, end: 20220115
  12. ACETAMINOPHEN [Concomitant]
     Active Substance: ACETAMINOPHEN
     Dates: start: 20220112, end: 20220115
  13. EPCORITAMAB [Concomitant]
     Active Substance: EPCORITAMAB
     Indication: Follicular lymphoma stage IV
     Dosage: PRIMING SINGLE
     Route: 058
     Dates: start: 20211228, end: 20211228
  14. EPCORITAMAB [Concomitant]
     Active Substance: EPCORITAMAB
     Dosage: IMMEDIATE DOSE SINGLE
     Route: 058
     Dates: start: 20220104, end: 20220104
  15. EPCORITAMAB [Concomitant]
     Active Substance: EPCORITAMAB
     Dosage: FULL DOSE
     Route: 058
     Dates: start: 20220111
  16. EPCORITAMAB [Concomitant]
     Active Substance: EPCORITAMAB
     Dosage: FULL DOSE
     Route: 065
     Dates: start: 20220215
  17. EPCORITAMAB [Concomitant]
     Active Substance: EPCORITAMAB
     Dosage: FULL DOSE
     Route: 065
     Dates: start: 20220208

REACTIONS (1)
  - Pneumonitis [Recovered/Resolved]

NARRATIVE: CASE EVENT DATE: 20220202
